FAERS Safety Report 9986533 (Version 1)
Quarter: 2014Q1

REPORT INFORMATION
  Report Type: Spontaneous
  Country: US (occurrence: US)
  Receive Date: 20140307
  Receipt Date: 20140307
  Transmission Date: 20141002
  Serious: No
  Sender: FDA-Public Use
  Company Number: US-ASTRAZENECA-2014SE08126

PATIENT
  Age: 20 Year
  Sex: Male
  Weight: 81.2 kg

DRUGS (5)
  1. NEXIUM [Suspect]
     Indication: GASTROOESOPHAGEAL REFLUX DISEASE
     Dosage: UNKNOWN DAILY
     Route: 048
  2. OMEPRAZOLE RX [Suspect]
     Indication: GASTROOESOPHAGEAL REFLUX DISEASE
     Dosage: UNKNOWN DAILY
     Route: 048
  3. CELEXA [Concomitant]
     Indication: DEPRESSION
     Route: 048
  4. TOPAMAX [Concomitant]
     Indication: DEPRESSION
     Route: 048
  5. GEODON [Concomitant]
     Indication: SCHIZOPHRENIA
     Route: 048

REACTIONS (8)
  - Adverse event [Unknown]
  - Schizophrenia [Unknown]
  - Decreased appetite [Unknown]
  - Gastrooesophageal reflux disease [Unknown]
  - Amnesia [Unknown]
  - Disturbance in attention [Unknown]
  - Depression [Unknown]
  - Agitation [Unknown]
